FAERS Safety Report 25942017 (Version 1)
Quarter: 2025Q4

REPORT INFORMATION
  Report Type: Report from Study
  Country: US (occurrence: US)
  Receive Date: 20251020
  Receipt Date: 20251020
  Transmission Date: 20260117
  Serious: Yes (Hospitalization)
  Sender: ABBVIE
  Company Number: US-ABBVIE-6507722

PATIENT
  Age: 51 Year
  Sex: Male

DRUGS (2)
  1. RINVOQ [Suspect]
     Active Substance: UPADACITINIB
     Indication: Colitis ulcerative
     Dosage: END DATE 2025?STRENGTH 15 MG
     Route: 048
     Dates: start: 202507
  2. RINVOQ [Suspect]
     Active Substance: UPADACITINIB
     Indication: Colitis ulcerative
     Dosage: START DATE 2025?STRENGTH 15 MG
     Route: 048

REACTIONS (4)
  - Gastrointestinal candidiasis [Unknown]
  - Pyrexia [Unknown]
  - Oral candidiasis [Unknown]
  - Oropharyngeal candidiasis [Unknown]

NARRATIVE: CASE EVENT DATE: 20250101
